FAERS Safety Report 19665355 (Version 3)
Quarter: 2021Q4

REPORT INFORMATION
  Report Type: Spontaneous
  Country: US (occurrence: None)
  Receive Date: 20210805
  Receipt Date: 20211111
  Transmission Date: 20220303
  Serious: No
  Sender: FDA-Public Use
  Company Number: US-ROCHE-2832393

PATIENT
  Sex: Female

DRUGS (1)
  1. GAVRETO [Suspect]
     Active Substance: PRALSETINIB
     Indication: Lung neoplasm malignant
     Route: 048
     Dates: start: 20210504

REACTIONS (4)
  - Hypertension [Recovered/Resolved]
  - Swelling face [Not Recovered/Not Resolved]
  - Ageusia [Unknown]
  - Fatigue [Unknown]
